FAERS Safety Report 21731989 (Version 1)
Quarter: 2022Q4

REPORT INFORMATION
  Report Type: Spontaneous
  Country: IN (occurrence: IN)
  Receive Date: 20221215
  Receipt Date: 20221215
  Transmission Date: 20230113
  Serious: Yes (Hospitalization, Other)
  Sender: FDA-Public Use
  Company Number: IN-MLMSERVICE-20221129-3948366-1

PATIENT
  Age: 30 Year
  Sex: Male

DRUGS (4)
  1. ONDANSETRON [Suspect]
     Active Substance: ONDANSETRON
     Indication: Insomnia
     Route: 048
  2. ONDANSETRON [Suspect]
     Active Substance: ONDANSETRON
     Indication: Back pain
  3. TRAMADOL [Suspect]
     Active Substance: TRAMADOL
     Indication: Insomnia
     Route: 048
  4. TRAMADOL [Suspect]
     Active Substance: TRAMADOL
     Indication: Back pain

REACTIONS (4)
  - Rhabdomyolysis [Recovered/Resolved]
  - Renal tubular injury [Recovered/Resolved]
  - Serotonin syndrome [Recovered/Resolved]
  - Product use in unapproved indication [Unknown]
